FAERS Safety Report 13705594 (Version 1)
Quarter: 2017Q2

REPORT INFORMATION
  Report Type: Spontaneous
  Country: US (occurrence: US)
  Receive Date: 20170630
  Receipt Date: 20170630
  Transmission Date: 20170830
  Serious: No
  Sender: FDA-Public Use
  Company Number: US-CROWN LABORATORIES, INC.-2022772

PATIENT
  Sex: Female

DRUGS (2)
  1. BLUE LIZARD REGULAR [Suspect]
     Active Substance: OCTINOXATE\OCTOCRYLENE\OXYBENZONE\ZINC OXIDE
     Indication: PROPHYLAXIS AGAINST SOLAR RADIATION
     Route: 061
     Dates: start: 20170610, end: 20170610
  2. BLUE LIZARD SENSITIVE SUNSCREEN [Suspect]
     Active Substance: TITANIUM DIOXIDE\ZINC OXIDE
     Indication: PROPHYLAXIS AGAINST SOLAR RADIATION
     Route: 061
     Dates: start: 20170622, end: 20170622

REACTIONS (8)
  - Administration site rash [Recovered/Resolved]
  - Application site erythema [None]
  - Dry skin [None]
  - Application site swelling [None]
  - Intentional product use issue [None]
  - Application site rash [None]
  - Application site dryness [None]
  - Administration site swelling [Recovering/Resolving]

NARRATIVE: CASE EVENT DATE: 20170610
